FAERS Safety Report 9093848 (Version 1)
Quarter: 2013Q1

REPORT INFORMATION
  Report Type: Report from Study
  Country: US (occurrence: US)
  Receive Date: 20130131
  Receipt Date: 20130131
  Transmission Date: 20140127
  Serious: No
  Sender: FDA-Public Use
  Company Number: US-ABBOTT-12P-163-1014620-00

PATIENT
  Age: 84 Year
  Sex: Female

DRUGS (13)
  1. HUMIRA [Suspect]
     Indication: PSORIASIS
     Dosage: LOADING DOSE
     Route: 058
     Dates: start: 20121120
  2. ALPRAZOLAM [Concomitant]
     Indication: PRODUCT USED FOR UNKNOWN INDICATION
  3. NAMENDA [Concomitant]
     Indication: DEMENTIA ALZHEIMER^S TYPE
  4. TRAMADOL [Concomitant]
     Indication: PAIN
     Dosage: 50 MG ONCE EVERY 6 HOURS AS REQUIRED
  5. CARVEDILOL [Concomitant]
     Indication: CARDIAC DISORDER
  6. CARVEDILOL [Concomitant]
     Indication: HYPERTENSION
  7. BUSPIRONE [Concomitant]
     Indication: DEPRESSION
  8. CITALOPRAM [Concomitant]
     Indication: PRODUCT USED FOR UNKNOWN INDICATION
  9. SIMVASTATIN [Concomitant]
     Indication: BLOOD CHOLESTEROL
     Dosage: CHOLESTEROL NOT OUT OF PROPORTION BUT TAKES IT
  10. CELEBREX [Concomitant]
     Indication: PAIN
  11. GABAPENTIN [Concomitant]
     Indication: PRODUCT USED FOR UNKNOWN INDICATION
     Dosage: AT BEDTIME
  12. CARMAX [Concomitant]
     Indication: PRODUCT USED FOR UNKNOWN INDICATION
     Dosage: SCALP OIL AT BEDTIME
     Route: 061
  13. FLUOCINOLONE [Concomitant]
     Indication: PRODUCT USED FOR UNKNOWN INDICATION
     Dosage: SCALP OIL AT BEDTIME
     Route: 061

REACTIONS (1)
  - Psoriasis [Not Recovered/Not Resolved]
